FAERS Safety Report 7629667-1 (Version None)
Quarter: 2011Q3

REPORT INFORMATION
  Report Type: 
  Country: None (occurrence: None)
  Receive Date: 20110722
  Receipt Date: 20110708
  Transmission Date: 20111222
  Serious: Yes (Other)
  Sender: FDA-Public Use
  Company Number: US-ROCHE-789265

PATIENT
  Age: 63 Year
  Sex: Male
  Weight: 106.9 kg

DRUGS (4)
  1. LENALIDOMIDE [Suspect]
     Indication: PROSTATE CANCER METASTATIC
     Dosage: ON DAYS 01-14 (CYCLE=21 DAYS); LAST DOSE ADMINISTERED ON 08 JUNE 2011, TOTAL DOSE ADMINISTERED 50 MG
     Route: 048
     Dates: start: 20101221
  2. PREDNISONE [Suspect]
     Indication: PROSTATE CANCER METASTATIC
     Dosage: LAST DOSE ADMINISTERED ON 08 JUNE 2011,TOTAL DOSE ADMINISTERED 20 MG
     Route: 048
     Dates: start: 20101221
  3. DOCETAXEL [Suspect]
     Indication: PROSTATE CANCER METASTATIC
     Dosage: OVER 60 MINS ON DAY 01(CYCLE 21 DAYS), LAST DOSE ADMINISTERED ON 07 JUNE 2011.TOTAL DOSE 167 MG
     Route: 042
     Dates: start: 20101221
  4. BEVACIZUMAB [Suspect]
     Indication: PROSTATE CANCER METASTATIC
     Dosage: OVER 30-90 MIN ON DAY 01 (CYCLE=21 DAYS),LAST DOSE ADMINISTERED ON 07 JUNE 2011. TOTAL DOSE 1640 MG
     Route: 042
     Dates: start: 20101221

REACTIONS (1)
  - OSTEONECROSIS OF JAW [None]
